FAERS Safety Report 6042472-5 (Version None)
Quarter: 2009Q1

REPORT INFORMATION
  Report Type: 
  Country: None (occurrence: None)
  Receive Date: 20090116
  Receipt Date: 20090108
  Transmission Date: 20090719
  Serious: Yes (Other)
  Sender: FDA-Public Use
  Company Number: JP-B.I. PHARMACEUTICALS,INC./RIDGEFIELD-2009-BP-00225YA

PATIENT
  Age: 77 Year
  Sex: Male

DRUGS (13)
  1. TAMSULOSIN HCL [Suspect]
     Indication: BENIGN PROSTATIC HYPERPLASIA
     Dosage: .2MG
     Route: 048
     Dates: end: 20090107
  2. LASIX [Concomitant]
     Route: 048
  3. ALDACTONE [Concomitant]
     Route: 048
  4. SHAKUYAKUKANZOUTOU (HERBAL EXTRACT NOS) [Concomitant]
  5. OMEPRAZOLE [Concomitant]
     Route: 048
  6. URSO 250 [Concomitant]
     Route: 048
  7. LIVACT (LEUCINE, ISOLEUCINE, VALINE) [Concomitant]
  8. VITAMEDIN (BENFOTIAMINE) [Concomitant]
     Route: 048
  9. MAGLAX (MAGNESIUM OXIDE) [Concomitant]
     Route: 048
  10. HIRUDOID (HEPARINOID) [Concomitant]
  11. INDOMETHACIN [Concomitant]
  12. SELTOUCH (FELBINAC) [Concomitant]
  13. LAXOBERON (SODIUM PICOSULFATE) [Concomitant]
     Route: 048

REACTIONS (1)
  - INTERSTITIAL LUNG DISEASE [None]
